FAERS Safety Report 6425030-X (Version None)
Quarter: 2009Q4

REPORT INFORMATION
  Report Type: 
  Country: None (occurrence: None)
  Receive Date: 20091103
  Receipt Date: 20091024
  Transmission Date: 20100525
  Serious: Yes (Hospitalization, Other)
  Sender: FDA-Public Use
  Company Number: US-ABBOTT-09P-163-0604697-00

PATIENT
  Sex: Female
  Weight: 90.8 kg

DRUGS (15)
  1. HUMIRA [Suspect]
     Indication: RHEUMATOID ARTHRITIS
     Dosage: ON HOLD FOR HEART SURGERY FOR UNKNOWN AMOUNT OF TIME
     Route: 058
     Dates: start: 20090109, end: 20090922
  2. HUMIRA [Suspect]
     Indication: OSTEOARTHRITIS
     Route: 058
     Dates: start: 20090922
  3. METHOTREXATE [Concomitant]
     Indication: DRUG USE FOR UNKNOWN INDICATION
     Dates: start: 20090309, end: 20090720
  4. LASIX [Concomitant]
     Indication: DRUG USE FOR UNKNOWN INDICATION
  5. POTASSIUM CHLORIDE [Concomitant]
     Indication: ELECTROLYTE SUBSTITUTION THERAPY
  6. IRON [Concomitant]
     Indication: DRUG USE FOR UNKNOWN INDICATION
  7. PREDNISONE [Concomitant]
     Indication: DRUG USE FOR UNKNOWN INDICATION
     Dates: start: 20090101
  8. HYDROXYCHLOROQUINE SULFATE [Concomitant]
     Indication: DRUG USE FOR UNKNOWN INDICATION
  9. PRILOSEC [Concomitant]
     Indication: DRUG USE FOR UNKNOWN INDICATION
  10. MIRALAX [Concomitant]
     Indication: DRUG USE FOR UNKNOWN INDICATION
  11. LYRICA [Concomitant]
     Indication: DRUG USE FOR UNKNOWN INDICATION
  12. OXYCODONE [Concomitant]
     Indication: DRUG USE FOR UNKNOWN INDICATION
  13. CYMBALTA [Concomitant]
     Indication: DRUG USE FOR UNKNOWN INDICATION
  14. REGLAN [Concomitant]
     Indication: DRUG USE FOR UNKNOWN INDICATION
  15. VITAMIN D [Concomitant]
     Indication: DRUG USE FOR UNKNOWN INDICATION

REACTIONS (11)
  - ARTHRALGIA [None]
  - BACK DISORDER [None]
  - BLOOD POTASSIUM DECREASED [None]
  - GAIT DISTURBANCE [None]
  - ILL-DEFINED DISORDER [None]
  - OEDEMA PERIPHERAL [None]
  - PAIN [None]
  - PERICARDIAL EFFUSION [None]
  - RENAL DISORDER [None]
  - RESPIRATORY TRACT INFECTION [None]
  - TRANSFUSION [None]
